FAERS Safety Report 7878319-1 (Version None)
Quarter: 2011Q4

REPORT INFORMATION
  Report Type: 
  Country: None (occurrence: None)
  Receive Date: 20111028
  Receipt Date: 20111012
  Transmission Date: 20120403
  Serious: Yes (Other)
  Sender: FDA-Public Use
  Company Number: JP-20110032

PATIENT
  Age: 62 Year
  Sex: Male

DRUGS (2)
  1. LIPIODOL ULTRA FLUIDE) (ETHIODIZED OIL) [Suspect]
     Indication: THERAPEUTIC EMBOLISATION
     Dosage: INTRA-ARTERIAL
     Route: 013
  2. HISTOACRYL (N BUTYL CYANOACRYLATE) [Suspect]
     Dosage: INTRA-ARTERIAL
     Route: 013

REACTIONS (3)
  - RETROPERITONEAL ABSCESS [None]
  - OFF LABEL USE [None]
  - PANCREATIC PSEUDOCYST [None]
